FAERS Safety Report 19263566 (Version 1)
Quarter: 2021Q2

REPORT INFORMATION
  Report Type: Spontaneous
  Country: US (occurrence: US)
  Receive Date: 20210514
  Receipt Date: 20210514
  Transmission Date: 20210717
  Serious: No
  Sender: FDA-Public Use
  Company Number: None

PATIENT
  Age: 40 Year
  Sex: Female

DRUGS (1)
  1. AMBRISENTAN 10MG TABLETS 30/BO:  10MG [Suspect]
     Active Substance: AMBRISENTAN
     Indication: PULMONARY ARTERIAL HYPERTENSION
     Route: 048
     Dates: start: 20191017

REACTIONS (6)
  - Swelling face [None]
  - Brain natriuretic peptide increased [None]
  - Dyspnoea [None]
  - Peripheral swelling [None]
  - Treatment noncompliance [None]
  - Pleuritic pain [None]

NARRATIVE: CASE EVENT DATE: 20210513
